FAERS Safety Report 9323637 (Version 2)
Quarter: 2013Q4

REPORT INFORMATION
  Report Type: Spontaneous
  Country: GR (occurrence: GR)
  Receive Date: 20130603
  Receipt Date: 20131227
  Transmission Date: 20140711
  Serious: Yes (Other)
  Sender: FDA-Public Use
  Company Number: GR-MERCK-1303GRC004770

PATIENT
  Age: 37 Year
  Sex: Female
  Weight: 61 kg

DRUGS (3)
  1. VICTRELIS [Suspect]
     Indication: HEPATITIS C
     Dosage: 800 MG, THREE TIMES DAILY (TID)
     Route: 048
     Dates: start: 2012
  2. PEGINTRON [Suspect]
     Indication: HEPATITIS C
     Dosage: 80 MG, QW
     Dates: start: 201210
  3. RIBAVIRIN [Suspect]
     Dosage: 1000 MG, UNK
     Route: 048
     Dates: start: 201210

REACTIONS (12)
  - Necrotising ulcerative gingivostomatitis [Recovered/Resolved]
  - Pharyngitis [Recovered/Resolved]
  - Asthenia [Recovered/Resolved]
  - Dysphagia [Recovered/Resolved]
  - Oral pain [Recovered/Resolved]
  - Haemoglobin decreased [Recovered/Resolved]
  - Dyspnoea [Unknown]
  - Cough [Unknown]
  - Alopecia [Unknown]
  - Oropharyngeal pain [Recovered/Resolved]
  - Weight decreased [Recovering/Resolving]
  - Pyrexia [Unknown]
